FAERS Safety Report 12203382 (Version 2)
Quarter: 2016Q2

REPORT INFORMATION
  Report Type: Report from Study
  Country: AU (occurrence: AU)
  Receive Date: 20160323
  Receipt Date: 20160504
  Transmission Date: 20160815
  Serious: Yes (Hospitalization)
  Sender: FDA-Public Use
  Company Number: PHHY2016AU034976

PATIENT
  Age: 77 Year
  Sex: Male

DRUGS (1)
  1. SANDOSTATIN LAR DEPOT [Suspect]
     Active Substance: OCTREOTIDE ACETATE
     Indication: ACROMEGALY
     Dosage: 30 MG, UNK
     Route: 030
     Dates: start: 2010

REACTIONS (11)
  - Nephrolithiasis [Recovering/Resolving]
  - Urine output decreased [Unknown]
  - Pyrexia [Unknown]
  - Infection [Unknown]
  - Confusional state [Unknown]
  - Flank pain [Unknown]
  - Stag horn calculus [Recovering/Resolving]
  - Urosepsis [Unknown]
  - Lethargy [Unknown]
  - Dehydration [Unknown]
  - Renal impairment [Unknown]

NARRATIVE: CASE EVENT DATE: 20151111
